FAERS Safety Report 5979639-8 (Version None)
Quarter: 2008Q4

REPORT INFORMATION
  Report Type: 
  Country: None (occurrence: None)
  Receive Date: 20081204
  Receipt Date: 20081124
  Transmission Date: 20090506
  Serious: Yes (Other)
  Sender: FDA-Public Use
  Company Number: US-MERCK-0811USA03984

PATIENT
  Age: 13 Year
  Sex: Male

DRUGS (1)
  1. DEXAMETHASONE [Suspect]
     Indication: CHEMOTHERAPY
     Route: 048

REACTIONS (2)
  - LEUKOENCEPHALOPATHY [None]
  - MYELOPATHY [None]
